FAERS Safety Report 5472327-6 (Version None)
Quarter: 2007Q3

REPORT INFORMATION
  Report Type: 
  Country: None (occurrence: None)
  Receive Date: 20070927
  Receipt Date: 20070911
  Transmission Date: 20080115
  Serious: Yes (Other)
  Sender: FDA-Public Use
  Company Number: 2007RL000399

PATIENT
  Age: 71 Year
  Sex: Female
  Weight: 78.4723 kg

DRUGS (13)
  1. RYTHMOL [Suspect]
     Indication: ATRIAL FIBRILLATION
     Dosage: 325 MG; BID; PO
     Route: 048
     Dates: start: 20070514, end: 20070701
  2. KLOR-CON [Concomitant]
  3. WARFARIN SODIUM [Concomitant]
  4. HYDROCHLOROTHIAZIDE [Concomitant]
  5. BENICAR [Concomitant]
  6. CARDIZEM CD [Concomitant]
  7. TRAMADOL HCL [Concomitant]
  8. TYLENOL (CAPLET) [Concomitant]
  9. CALCIUM CARBONATE [Concomitant]
  10. OMEPRAZOLE [Concomitant]
  11. TRAMADOL AND ACETAMINOPHEN [Concomitant]
  12. ASPIRIN [Concomitant]
  13. VITAMIN E /00110501/ [Concomitant]

REACTIONS (9)
  - BLOOD GLUCOSE INCREASED [None]
  - HAEMATOCRIT DECREASED [None]
  - HAEMOGLOBIN DECREASED [None]
  - HEPATIC STEATOSIS [None]
  - HEPATITIS A ANTIBODY POSITIVE [None]
  - HEPATITIS ACUTE [None]
  - HEPATITIS B ANTIBODY POSITIVE [None]
  - PLATELET COUNT INCREASED [None]
  - PROTHROMBIN TIME PROLONGED [None]
